FAERS Safety Report 17501803 (Version 6)
Quarter: 2025Q4

REPORT INFORMATION
  Report Type: Spontaneous
  Country: US (occurrence: US)
  Receive Date: 20200305
  Receipt Date: 20251016
  Transmission Date: 20260118
  Serious: Yes (Other)
  Sender: PFIZER
  Company Number: US-PFIZER INC-2020098713

PATIENT
  Age: 75 Year
  Sex: Female

DRUGS (1)
  1. XELJANZ [Suspect]
     Active Substance: TOFACITINIB CITRATE
     Dosage: 5 MG
     Route: 048

REACTIONS (8)
  - Deafness [Unknown]
  - Nasopharyngitis [Unknown]
  - Malaise [Unknown]
  - Confusional state [Unknown]
  - Arthralgia [Unknown]
  - Fatigue [Unknown]
  - Illness [Unknown]
  - Anxiety [Unknown]

NARRATIVE: CASE EVENT DATE: 20230301
